FAERS Safety Report 9132323 (Version 1)
Quarter: 2013Q1

REPORT INFORMATION
  Report Type: Spontaneous
  Country: DK (occurrence: ES)
  Receive Date: 20130107
  Receipt Date: 20130107
  Transmission Date: 20140127
  Serious: Yes (Hospitalization)
  Sender: FDA-Public Use
  Company Number: ES-FRI-1000041409

PATIENT
  Age: 48 Year
  Sex: Female

DRUGS (3)
  1. ESCITALOPRAM [Suspect]
     Indication: DEPRESSION
     Dosage: 20 MG
     Route: 048
     Dates: start: 20120109, end: 20120610
  2. PARACETAMOL [Concomitant]
     Indication: PAIN
     Dates: start: 20120303, end: 20120610
  3. LEXATIN [Concomitant]
     Indication: INSOMNIA
     Dosage: 9 MG
     Route: 048
     Dates: start: 20120109, end: 20120610

REACTIONS (5)
  - Torsade de pointes [Recovered/Resolved]
  - Cardiogenic shock [Recovered/Resolved]
  - Cardiac arrest [Recovered/Resolved]
  - Hypokalaemia [Recovered/Resolved]
  - Hypomagnesaemia [Recovered/Resolved]
